FAERS Safety Report 5279322-0 (Version None)
Quarter: 2007Q1

REPORT INFORMATION
  Report Type: 
  Country: None (occurrence: None)
  Receive Date: 20070328
  Receipt Date: 20060405
  Transmission Date: 20070707
  Serious: No
  Sender: FDA-Public Use
  Company Number: US-AMGEN-US175401

PATIENT
  Age: 67 Year
  Sex: Male

DRUGS (2)
  1. NEULASTA [Suspect]
     Indication: CHEMOTHERAPY
     Route: 058
     Dates: start: 20060324, end: 20060324
  2. VELCADE [Concomitant]
     Route: 065

REACTIONS (2)
  - NAUSEA [None]
  - SWELLING FACE [None]
